FAERS Safety Report 11027800 (Version 2)
Quarter: 2015Q2

REPORT INFORMATION
  Report Type: Spontaneous
  Country: IT (occurrence: IT)
  Receive Date: 20150414
  Receipt Date: 20150422
  Transmission Date: 20150821
  Serious: Yes (Other)
  Sender: FDA-Public Use
  Company Number: IT-PFIZER INC-2015122138

PATIENT
  Age: 77 Year
  Sex: Male

DRUGS (2)
  1. TORVAST [Suspect]
     Active Substance: ATORVASTATIN
     Dosage: 20 MG, DAILY
     Route: 048
     Dates: start: 2013
  2. CIPROFLOXACINA SANDOZ [Interacting]
     Active Substance: CIPROFLOXACIN
     Indication: PSEUDOMONAS INFECTION
     Dosage: 1 G, DAILY
     Route: 048
     Dates: start: 20150324, end: 20150327

REACTIONS (2)
  - Drug interaction [Recovered/Resolved]
  - Transaminases increased [Recovered/Resolved]

NARRATIVE: CASE EVENT DATE: 20150325
